FAERS Safety Report 9722421 (Version 2)
Quarter: 2013Q4

REPORT INFORMATION
  Report Type: Spontaneous
  Country: CA (occurrence: CA)
  Receive Date: 20131202
  Receipt Date: 20131222
  Transmission Date: 20140711
  Serious: Yes (Hospitalization, Other)
  Sender: FDA-Public Use
  Company Number: PHHY2013CA138697

PATIENT
  Age: 69 Year
  Sex: Female

DRUGS (20)
  1. GLEEVEC [Suspect]
     Indication: CHRONIC MYELOID LEUKAEMIA
     Dosage: 400 MG, UNK
     Route: 048
     Dates: start: 20020521
  2. GLEEVEC [Suspect]
     Dosage: 300 MG, UNK
     Route: 048
     Dates: start: 2008
  3. GLEEVEC [Suspect]
     Dosage: 200 MG, UNK
     Route: 048
     Dates: start: 2009, end: 201001
  4. GLEEVEC [Suspect]
     Dosage: 300 MG, QOD
     Route: 048
     Dates: end: 20131112
  5. DASATINIB [Suspect]
     Dosage: UNK UKN, UNK
     Dates: start: 201008, end: 201105
  6. DASATINIB [Suspect]
     Dosage: UNK UKN, UNK
     Dates: end: 201203
  7. ADVAIR [Concomitant]
     Dosage: UNK UKN, UNK
  8. CLONAZEPAM [Concomitant]
     Dosage: 5 MG, PRN
  9. GLICLAZIDE [Concomitant]
     Dosage: 80 MG, BID
  10. METFORMIN [Concomitant]
     Dosage: UNK UKN, UNK
  11. SAXAGLIPTIN [Concomitant]
     Dosage: UNK UKN, UNK
  12. LANSOPRAZOLE [Concomitant]
     Dosage: UNK UKN, UNK
  13. ASA [Concomitant]
     Dosage: 81 MG, DAILY
     Route: 048
  14. TELMISARTAN [Concomitant]
     Dosage: UNK UKN, UNK
  15. FOLIC ACID [Concomitant]
     Dosage: 5 MG, DAILY
     Route: 048
  16. EZETIMIBE [Concomitant]
     Dosage: UNK UKN, UNK
  17. TIAZINE [Concomitant]
     Dosage: UNK UKN, UNK
  18. ONGLYZA [Concomitant]
     Dosage: 5 MG, DAILY
     Route: 048
  19. TIAZAC [Concomitant]
     Dosage: 180 MG, DAILY
     Route: 048
  20. EZETROL [Concomitant]
     Dosage: 10 MG, DAILY
     Route: 048

REACTIONS (4)
  - Lung adenocarcinoma [Recovered/Resolved]
  - Second primary malignancy [Recovered/Resolved]
  - Pleural effusion [Recovered/Resolved]
  - Muscle spasms [Recovered/Resolved]
